FAERS Safety Report 8169779-X (Version None)
Quarter: 2012Q1

REPORT INFORMATION
  Report Type: 
  Country: None (occurrence: None)
  Receive Date: 20120228
  Receipt Date: 20120223
  Transmission Date: 20120608
  Serious: No
  Sender: FDA-Public Use
  Company Number: US-PFIZER INC-2011296854

PATIENT
  Sex: Male

DRUGS (2)
  1. CELEBREX [Suspect]
     Indication: OSTEOARTHRITIS
     Dosage: 200 MG, UNK
     Route: 048
     Dates: start: 20110601, end: 20111201
  2. OXYCONTIN [Concomitant]
     Indication: PAIN
     Dosage: UNK

REACTIONS (6)
  - NASOPHARYNGITIS [None]
  - WITHDRAWAL SYNDROME [None]
  - INFLUENZA LIKE ILLNESS [None]
  - PAIN [None]
  - HAEMOPTYSIS [None]
  - HEADACHE [None]
